FAERS Safety Report 17127276 (Version 1)
Quarter: 2019Q4

REPORT INFORMATION
  Report Type: Spontaneous
  Country: US (occurrence: US)
  Receive Date: 20191114
  Receipt Date: 20191114
  Transmission Date: 20200122
  Serious: Yes (Other)
  Sender: FDA-Public Use
  Company Number: None

PATIENT
  Sex: Male

DRUGS (1)
  1. ARISTADA [Suspect]
     Active Substance: ARIPIPRAZOLE LAUROXIL
     Indication: SCHIZOPHRENIA
     Dosage: ?          OTHER FREQUENCY:EVERY 30 DAYS;?
     Route: 030
     Dates: start: 20191101

REACTIONS (8)
  - Musculoskeletal disorder [None]
  - Lethargy [None]
  - Slow speech [None]
  - Confusional state [None]
  - Body temperature decreased [None]
  - Chest pain [None]
  - Pain in extremity [None]
  - Mental disorder [None]
